FAERS Safety Report 21046363 (Version 1)
Quarter: 2022Q3

REPORT INFORMATION
  Report Type: Spontaneous
  Country: US (occurrence: US)
  Receive Date: 20220706
  Receipt Date: 20220706
  Transmission Date: 20221027
  Serious: Yes (Other)
  Sender: FDA-Public Use
  Company Number: US-SA-SAC20220704000560

PATIENT
  Age: 71 Year
  Sex: Male

DRUGS (2)
  1. ZANTAC [Suspect]
     Active Substance: RANITIDINE HYDROCHLORIDE
     Indication: Dyspepsia
     Dosage: 75 MG, QD
     Dates: start: 198301
  2. ZANTAC [Suspect]
     Active Substance: RANITIDINE HYDROCHLORIDE
     Dosage: 150MG, QD
     Dates: end: 201912

REACTIONS (5)
  - Colorectal cancer [Unknown]
  - Lung carcinoma cell type unspecified stage III [Not Recovered/Not Resolved]
  - Gastrointestinal carcinoma [Unknown]
  - Hepatic cancer stage III [Not Recovered/Not Resolved]
  - Small intestine carcinoma [Unknown]

NARRATIVE: CASE EVENT DATE: 20201101
